FAERS Safety Report 19165146 (Version 2)
Quarter: 2021Q2

REPORT INFORMATION
  Report Type: Report from Study
  Country: US (occurrence: US)
  Receive Date: 20210421
  Receipt Date: 20210506
  Transmission Date: 20210717
  Serious: Yes (Hospitalization, Other)
  Sender: FDA-Public Use
  Company Number: US-JNJFOC-20210425983

PATIENT
  Age: 84 Year
  Sex: Female

DRUGS (3)
  1. OPSUMIT [Concomitant]
     Active Substance: MACITENTAN
  2. SELEXIPAG [Suspect]
     Active Substance: SELEXIPAG
     Indication: PULMONARY HYPERTENSION
     Route: 048
  3. AMLODIPINE [Concomitant]
     Active Substance: AMLODIPINE BESYLATE

REACTIONS (3)
  - Product dose omission issue [Not Recovered/Not Resolved]
  - Septic shock [Unknown]
  - Pneumonia [Unknown]

NARRATIVE: CASE EVENT DATE: 20210407
